FAERS Safety Report 25607712 (Version 1)
Quarter: 2025Q3

REPORT INFORMATION
  Report Type: Spontaneous
  Country: JP (occurrence: JP)
  Receive Date: 20250725
  Receipt Date: 20250725
  Transmission Date: 20251020
  Serious: Yes (Hospitalization, Other)
  Sender: MERCK SHARP & DOHME LLC
  Company Number: JP-009507513-2312500

PATIENT
  Age: 79 Year
  Sex: Female

DRUGS (15)
  1. KEYTRUDA [Suspect]
     Active Substance: PEMBROLIZUMAB
     Indication: Gastric cancer
     Route: 065
     Dates: start: 20250115
  2. KEYTRUDA [Suspect]
     Active Substance: PEMBROLIZUMAB
     Indication: Gastric cancer
     Route: 065
     Dates: start: 20250416
  3. KEYTRUDA [Suspect]
     Active Substance: PEMBROLIZUMAB
     Indication: Gastric cancer
     Route: 065
     Dates: start: 20250205
  4. KEYTRUDA [Suspect]
     Active Substance: PEMBROLIZUMAB
     Indication: Gastric cancer
     Route: 065
     Dates: start: 20250226
  5. KEYTRUDA [Suspect]
     Active Substance: PEMBROLIZUMAB
     Indication: Gastric cancer
     Route: 065
     Dates: start: 20250319
  6. GIMERACIL [Suspect]
     Active Substance: GIMERACIL
     Indication: Gastric cancer
     Route: 065
     Dates: start: 20250416
  7. GIMERACIL [Suspect]
     Active Substance: GIMERACIL
     Indication: Gastric cancer
     Route: 065
     Dates: start: 20250115
  8. GIMERACIL [Suspect]
     Active Substance: GIMERACIL
     Indication: Gastric cancer
     Route: 065
     Dates: start: 20250205
  9. GIMERACIL [Suspect]
     Active Substance: GIMERACIL
     Indication: Gastric cancer
     Route: 065
     Dates: start: 20250226
  10. GIMERACIL [Suspect]
     Active Substance: GIMERACIL
     Indication: Gastric cancer
     Route: 065
     Dates: start: 20250319
  11. OXALIPLATIN [Suspect]
     Active Substance: OXALIPLATIN
     Indication: Abdominal pain upper
     Route: 065
     Dates: start: 20250205
  12. OXALIPLATIN [Suspect]
     Active Substance: OXALIPLATIN
     Indication: Abdominal pain upper
     Route: 065
     Dates: start: 20250226
  13. OXALIPLATIN [Suspect]
     Active Substance: OXALIPLATIN
     Indication: Abdominal pain upper
     Route: 065
     Dates: start: 20250319
  14. OXALIPLATIN [Suspect]
     Active Substance: OXALIPLATIN
     Indication: Abdominal pain upper
     Route: 065
     Dates: start: 20250416
  15. OXALIPLATIN [Suspect]
     Active Substance: OXALIPLATIN
     Indication: Abdominal pain upper
     Route: 065
     Dates: start: 20250115

REACTIONS (4)
  - Obstruction gastric [Unknown]
  - Interstitial lung disease [Unknown]
  - Ascites [Unknown]
  - Oedema [Unknown]

NARRATIVE: CASE EVENT DATE: 20250317
